FAERS Safety Report 6702448-9 (Version None)
Quarter: 2010Q2

REPORT INFORMATION
  Report Type: 
  Country: None (occurrence: None)
  Receive Date: 20100429
  Receipt Date: 20100420
  Transmission Date: 20101027
  Serious: Yes (Hospitalization)
  Sender: FDA-Public Use
  Company Number: B0638216A

PATIENT
  Sex: Female
  Weight: 89.9 kg

DRUGS (11)
  1. ARIXTRA [Suspect]
     Indication: ATRIAL FIBRILLATION
     Dosage: 7.5MG PER DAY
     Route: 058
     Dates: start: 20091216, end: 20091225
  2. CORDARONE [Concomitant]
     Indication: ATRIAL FIBRILLATION
     Route: 048
  3. ACETAMINOPHEN [Concomitant]
     Route: 048
  4. NEXIUM [Concomitant]
     Dosage: 20MG PER DAY
     Route: 048
  5. NEBIVOLOL [Concomitant]
     Dosage: 5MG PER DAY
     Route: 048
  6. NISISCO [Concomitant]
     Dosage: 1TAB PER DAY
     Route: 048
  7. HYPERIUM [Concomitant]
     Dosage: 1MG TWICE PER DAY
     Route: 048
  8. POVIDONE IODINE [Concomitant]
     Route: 047
  9. TANAKAN [Concomitant]
     Dosage: 1TAB THREE TIMES PER DAY
     Route: 048
  10. MIOREL [Concomitant]
     Indication: SCIATICA
     Dosage: 4MG TWICE PER DAY
     Route: 030
     Dates: start: 20091223, end: 20091226
  11. PROFENID [Concomitant]
     Indication: SCIATICA
     Route: 030
     Dates: start: 20091223, end: 20091226

REACTIONS (5)
  - DYSURIA [None]
  - MOTOR DYSFUNCTION [None]
  - MUSCLE HAEMORRHAGE [None]
  - OFF LABEL USE [None]
  - SCIATICA [None]
